FAERS Safety Report 13002360 (Version 1)
Quarter: 2016Q4

REPORT INFORMATION
  Report Type: Other
  Country: GB (occurrence: GB)
  Receive Date: 20161206
  Receipt Date: 20161206
  Transmission Date: 20170207
  Serious: Yes (Other)
  Sender: FDA-Public Use
  Company Number: GB-PERRIGO-16GB022389

PATIENT

DRUGS (1)
  1. IBUPROFEN. [Suspect]
     Active Substance: IBUPROFEN
     Indication: ABDOMINAL PAIN
     Dosage: 2.5 ML, UNK
     Route: 048
     Dates: start: 20161119, end: 20161120

REACTIONS (6)
  - Crying [Unknown]
  - Swollen tongue [Unknown]
  - Pain [Unknown]
  - Throat irritation [Unknown]
  - Pharyngeal oedema [Recovering/Resolving]
  - Mouth swelling [Unknown]

NARRATIVE: CASE EVENT DATE: 20161119
